FAERS Safety Report 11153278 (Version 3)
Quarter: 2015Q2

REPORT INFORMATION
  Report Type: Spontaneous
  Country: TR (occurrence: TR)
  Receive Date: 20150601
  Receipt Date: 20150610
  Transmission Date: 20150821
  Serious: Yes (Hospitalization)
  Sender: FDA-Public Use
  Company Number: PHHY2015TR063440

PATIENT
  Age: 16 Year
  Sex: Male
  Weight: 27 kg

DRUGS (4)
  1. CARBAMAZEPINE. [Suspect]
     Active Substance: CARBAMAZEPINE
     Indication: INSOMNIA
  2. QUETIAPINE [Suspect]
     Active Substance: QUETIAPINE
     Indication: GENERALISED TONIC-CLONIC SEIZURE
     Route: 065
  3. CARBAMAZEPINE. [Suspect]
     Active Substance: CARBAMAZEPINE
     Indication: GENERALISED TONIC-CLONIC SEIZURE
     Route: 065
  4. QUETIAPINE [Suspect]
     Active Substance: QUETIAPINE
     Indication: INSOMNIA

REACTIONS (7)
  - Decreased appetite [Recovered/Resolved]
  - Acute kidney injury [Recovered/Resolved]
  - Oliguria [Recovered/Resolved]
  - Fatigue [Recovered/Resolved]
  - Haematuria [Recovered/Resolved]
  - Rhabdomyolysis [Unknown]
  - Dyskinesia [Unknown]
